FAERS Safety Report 25352497 (Version 1)
Quarter: 2025Q2

REPORT INFORMATION
  Report Type: Spontaneous
  Country: US (occurrence: US)
  Receive Date: 20250523
  Receipt Date: 20250523
  Transmission Date: 20250717
  Serious: No
  Sender: LYNE LABORATORIES
  Company Number: US-Lyne Laboratories Inc.-2177364

PATIENT

DRUGS (2)
  1. NYSTATIN [Suspect]
     Active Substance: NYSTATIN
     Indication: Oral candidiasis
  2. MICONAZOLE NITRATE [Concomitant]
     Active Substance: MICONAZOLE NITRATE

REACTIONS (1)
  - Drug ineffective [Unknown]
